FAERS Safety Report 8062111-1 (Version None)
Quarter: 2012Q1

REPORT INFORMATION
  Report Type: 
  Country: None (occurrence: None)
  Receive Date: 20120118
  Receipt Date: 20120109
  Transmission Date: 20120608
  Serious: Yes (Death)
  Sender: FDA-Public Use
  Company Number: JPI-P-004373

PATIENT
  Age: 77 Year
  Sex: Female

DRUGS (2)
  1. XYREM [Suspect]
     Indication: CATAPLEXY
     Dosage: (UNKNOWN), ORAL 7.5 GM (3.75 GM, 2 IN 1 D), ORAL
     Route: 048
  2. XYREM [Suspect]
     Indication: NARCOLEPSY
     Dosage: (UNKNOWN), ORAL 7.5 GM (3.75 GM, 2 IN 1 D), ORAL
     Route: 048

REACTIONS (3)
  - DRUG INEFFECTIVE [None]
  - OEDEMA [None]
  - MUSCLE TWITCHING [None]
